FAERS Safety Report 9972341 (Version 1)
Quarter: 2014Q1

REPORT INFORMATION
  Report Type: Spontaneous
  Country: GB (occurrence: None)
  Receive Date: 20140304
  Receipt Date: 20140304
  Transmission Date: 20141002
  Serious: Yes (Death)
  Sender: FDA-Public Use
  Company Number: 2014P1001579

PATIENT
  Age: 18 Year
  Sex: Male

DRUGS (1)
  1. DOXYCYCLINE [Suspect]
     Indication: ACNE
     Dates: start: 2010, end: 201108

REACTIONS (6)
  - Malaise [None]
  - Depressed mood [None]
  - Impaired work ability [None]
  - Depressed mood [None]
  - Completed suicide [None]
  - Asphyxia [None]
